FAERS Safety Report 18024571 (Version 1)
Quarter: 2020Q3

REPORT INFORMATION
  Report Type: Spontaneous
  Country: US (occurrence: US)
  Receive Date: 20200714
  Receipt Date: 20200714
  Transmission Date: 20201103
  Serious: No
  Sender: FDA-Public Use
  Company Number: None

PATIENT
  Age: 57 Year
  Sex: Female
  Weight: 106.2 kg

DRUGS (5)
  1. MODAFINIL GENERIC FOR :PROVIGIL 200 MG [Suspect]
     Active Substance: MODAFINIL
     Indication: NARCOLEPSY
     Dosage: ?          QUANTITY:1 TABLET(S);?
     Route: 048
     Dates: start: 20200701
  2. LEVOTHYROXINE. [Concomitant]
     Active Substance: LEVOTHYROXINE
  3. ALAVERT ALLERGY [Concomitant]
     Active Substance: LORATADINE
  4. RETAINE HPMC [Concomitant]
     Active Substance: HYPROMELLOSE 2910 (4000 MPA.S)
  5. TRAZODONE [Concomitant]
     Active Substance: TRAZODONE HYDROCHLORIDE

REACTIONS (9)
  - Condition aggravated [None]
  - Feeling abnormal [None]
  - Fatigue [None]
  - Drug ineffective [None]
  - Impaired driving ability [None]
  - Product quality issue [None]
  - Non-24-hour sleep-wake disorder [None]
  - Product formulation issue [None]
  - Sleep disorder [None]
